FAERS Safety Report 6433482-4 (Version None)
Quarter: 2009Q4

REPORT INFORMATION
  Report Type: 
  Country: None (occurrence: None)
  Receive Date: 20091106
  Receipt Date: 20091106
  Transmission Date: 20100525
  Serious: Yes (Other)
  Sender: FDA-Public Use
  Company Number: None

PATIENT
  Age: 66 Year
  Sex: Female
  Weight: 66.2252 kg

DRUGS (1)
  1. JANUVIA [Suspect]
     Indication: DIABETES MELLITUS
     Dosage: 1 TAB DAILY PO
     Route: 048
     Dates: start: 20090414, end: 20090426

REACTIONS (7)
  - ARTHRALGIA [None]
  - BURNING SENSATION [None]
  - DIABETIC NEUROPATHY [None]
  - DRUG INEFFECTIVE [None]
  - FRUSTRATION [None]
  - HYPERAESTHESIA [None]
  - INSOMNIA [None]
